FAERS Safety Report 14731055 (Version 1)
Quarter: 2018Q2

REPORT INFORMATION
  Report Type: Report from Study
  Country: US (occurrence: US)
  Receive Date: 20180406
  Receipt Date: 20180406
  Transmission Date: 20180711
  Serious: No
  Sender: FDA-Public Use
  Company Number: US-ACTELION-A-US2017-157256

PATIENT
  Age: 56 Year
  Sex: Female
  Weight: 93.88 kg

DRUGS (2)
  1. OPSUMIT [Suspect]
     Active Substance: MACITENTAN
     Indication: PULMONARY ARTERIAL HYPERTENSION
     Dosage: 10 MG, QD
     Route: 048
     Dates: end: 201802
  2. REMODULIN [Concomitant]
     Active Substance: TREPROSTINIL

REACTIONS (24)
  - Fall [Unknown]
  - Contusion [Recovered/Resolved]
  - Dyspnoea [Unknown]
  - Dry throat [Unknown]
  - Oropharyngeal pain [Unknown]
  - Vertigo [Unknown]
  - Ocular icterus [Unknown]
  - Vision blurred [Unknown]
  - Fatigue [Recovered/Resolved]
  - Rash [Unknown]
  - Loss of consciousness [Unknown]
  - Flank pain [Unknown]
  - Dehydration [Unknown]
  - Decreased activity [Unknown]
  - Pruritus [Unknown]
  - Renal pain [Unknown]
  - Abdominal pain [Unknown]
  - Nasal congestion [Unknown]
  - Diarrhoea [Unknown]
  - Headache [Unknown]
  - Drug dose omission [Unknown]
  - Therapy non-responder [Unknown]
  - Immunodeficiency [Unknown]
  - Laboratory test abnormal [Unknown]

NARRATIVE: CASE EVENT DATE: 20170811
